FAERS Safety Report 4890178-8 (Version None)
Quarter: 2005Q4

REPORT INFORMATION
  Report Type: 
  Country: None (occurrence: None)
  Receive Date: 20051220
  Receipt Date: 20051031
  Transmission Date: 20060501
  Serious: Yes (Other)
  Sender: FDA-Public Use
  Company Number: 423278

PATIENT
  Sex: Female

DRUGS (2)
  1. BONIVA [Suspect]
     Dosage: ORAL
     Route: 048
  2. PREDNISONE [Concomitant]

REACTIONS (2)
  - GINGIVAL PAIN [None]
  - TOOTHACHE [None]
